FAERS Safety Report 7432600-9 (Version None)
Quarter: 2011Q2

REPORT INFORMATION
  Report Type: 
  Country: None (occurrence: None)
  Receive Date: 20110422
  Receipt Date: 20110419
  Transmission Date: 20111010
  Serious: Yes (Other)
  Sender: FDA-Public Use
  Company Number: US-PFIZER INC-2011086625

PATIENT
  Sex: Male

DRUGS (2)
  1. LYRICA [Suspect]
     Dosage: 75 MG, 1X/DAY NIGHTLY
  2. PERCOCET [Concomitant]
     Dosage: UNK

REACTIONS (5)
  - AGGRESSION [None]
  - HOSTILITY [None]
  - EUPHORIC MOOD [None]
  - FATIGUE [None]
  - EMOTIONAL DISORDER [None]
